FAERS Safety Report 5700418-0 (Version None)
Quarter: 2008Q2

REPORT INFORMATION
  Report Type: 
  Country: None (occurrence: None)
  Receive Date: 20080410
  Receipt Date: 20080328
  Transmission Date: 20081010
  Serious: Yes (Other)
  Sender: FDA-Public Use
  Company Number: FR-PFIZER INC-2008023029

PATIENT
  Sex: Female
  Weight: 61 kg

DRUGS (2)
  1. RELPAX [Suspect]
     Indication: MIGRAINE
     Dosage: DAILY DOSE:40MG
     Route: 048
     Dates: start: 20080224, end: 20080224
  2. FROVATRIPTAN [Suspect]
     Indication: MIGRAINE
     Route: 048
     Dates: start: 20080220, end: 20080222

REACTIONS (2)
  - PLATELET COUNT DECREASED [None]
  - PURPURA [None]
